FAERS Safety Report 4641164-4 (Version None)
Quarter: 2005Q1

REPORT INFORMATION
  Report Type: 
  Country: None (occurrence: None)
  Receive Date: 20050322
  Receipt Date: 20040402
  Transmission Date: 20050727
  Serious: Yes (Hospitalization)
  Sender: FDA-Public Use
  Company Number: HQWYE352205APR04

PATIENT
  Age: 2 Year
  Sex: Male
  Weight: 13.9 kg

DRUGS (1)
  1. PROTONIX [Suspect]
     Dosage: 15-20 40 MG TABLETS (OVERDOSE AMOUNT), ORAL
     Route: 048
     Dates: start: 20040401, end: 20040401

REACTIONS (2)
  - ACCIDENTAL OVERDOSE [None]
  - HEART RATE INCREASED [None]
